FAERS Safety Report 14993563 (Version 3)
Quarter: 2024Q1

REPORT INFORMATION
  Report Type: Spontaneous
  Country: DE (occurrence: DE)
  Receive Date: 20180611
  Receipt Date: 20240211
  Transmission Date: 20240410
  Serious: Yes (Other)
  Sender: FDA-Public Use
  Company Number: None

PATIENT
  Age: 18 Year
  Sex: Female

DRUGS (8)
  1. IMATINIB [Suspect]
     Active Substance: IMATINIB
     Indication: Product used for unknown indication
     Dosage: 50% DOSE REDUCTION, UNK
     Route: 065
  2. IMATINIB [Suspect]
     Active Substance: IMATINIB
     Indication: Ewing^s sarcoma
     Dosage: 400 MG, UNK
     Route: 048
  3. IMATINIB [Suspect]
     Active Substance: IMATINIB
     Dosage: FULL DOSE AFTER THE END OF RADIOTHERAPY, UNK
     Route: 065
  4. EPIRUBICIN [Suspect]
     Active Substance: EPIRUBICIN
     Indication: Ewing^s sarcoma
     Dosage: UNK
     Route: 065
  5. EPIRUBICIN [Suspect]
     Active Substance: EPIRUBICIN
     Dosage: FULL DOSE AFTER THE END OF RADIOTHERAPY, UNK
     Route: 065
  6. EPIRUBICIN [Suspect]
     Active Substance: EPIRUBICIN
     Dosage: 100 MG/M2, UNK
     Route: 042
  7. CELECOXIB [Suspect]
     Active Substance: CELECOXIB
     Indication: Ewing^s sarcoma
     Dosage: 200 MG, UNK
     Route: 048
  8. DASATINIB [Suspect]
     Active Substance: DASATINIB
     Indication: Ewing^s sarcoma
     Dosage: 100 MG, UNK
     Route: 048

REACTIONS (11)
  - Thrombocytopenia [Unknown]
  - Neutropenia [Unknown]
  - Lymphopenia [Unknown]
  - Anaemia [Unknown]
  - Vomiting [Unknown]
  - Nausea [Unknown]
  - Anxiety [Unknown]
  - Malignant neoplasm progression [Unknown]
  - Metastasis [Unknown]
  - Depression [Unknown]
  - Toxicity to various agents [Unknown]
